FAERS Safety Report 20896480 (Version 1)
Quarter: 2022Q2

REPORT INFORMATION
  Report Type: Spontaneous
  Country: US (occurrence: US)
  Receive Date: 20220531
  Receipt Date: 20220531
  Transmission Date: 20220720
  Serious: Yes (Other)
  Sender: FDA-Public Use
  Company Number: US-HOSPIRA-213946

PATIENT
  Age: 20 Month
  Sex: Female
  Weight: 10.7 kg

DRUGS (4)
  1. DEXMEDETOMIDINE HYDROCHLORIDE [Suspect]
     Active Substance: DEXMEDETOMIDINE HYDROCHLORIDE
     Indication: Sedative therapy
     Dosage: 1 MCG/KG/MIN
     Route: 041
  2. MIDAZOLAM [Concomitant]
     Active Substance: MIDAZOLAM
     Indication: Anxiolytic therapy
     Dosage: 0.5 MG/KG
     Route: 048
  3. PROPOFOL [Concomitant]
     Active Substance: PROPOFOL
     Indication: Catheterisation cardiac
     Dosage: 2 MG/KG
     Route: 042
  4. FENTANYL [Concomitant]
     Active Substance: FENTANYL
     Indication: Catheterisation cardiac
     Dosage: 2 UG/KG, UNK
     Route: 042

REACTIONS (5)
  - Bradycardia [Recovered/Resolved]
  - Hypertension [Recovered/Resolved]
  - Hypoglycaemia [Recovered/Resolved]
  - Off label use [Recovered/Resolved]
  - Overdose [Recovered/Resolved]
